FAERS Safety Report 8090010-8 (Version None)
Quarter: 2012Q1

REPORT INFORMATION
  Report Type: 
  Country: None (occurrence: None)
  Receive Date: 20120129
  Receipt Date: 20110930
  Transmission Date: 20120608
  Serious: No
  Sender: FDA-Public Use
  Company Number: US-ABBOTT-11P-163-0860052-00

PATIENT
  Age: 44 Year
  Sex: Male

DRUGS (6)
  1. HUMIRA [Suspect]
     Dates: start: 20110712
  2. AZATHIOPRINE [Concomitant]
     Indication: CROHN'S DISEASE
  3. PENTASA [Concomitant]
     Indication: CROHN'S DISEASE
     Dosage: 2 PILLS, 4 TIMES DAILY
  4. DICYCLOMINE [Concomitant]
     Indication: CROHN'S DISEASE
  5. HUMIRA [Suspect]
     Indication: CROHN'S DISEASE
     Dates: start: 20110328
  6. BUDESONIDE [Concomitant]
     Indication: CROHN'S DISEASE
     Dosage: 3 IN THE MORNING

REACTIONS (1)
  - DRUG INEFFECTIVE [None]
